FAERS Safety Report 24575138 (Version 1)
Quarter: 2024Q4

REPORT INFORMATION
  Report Type: Spontaneous
  Country: CA (occurrence: CA)
  Receive Date: 20241104
  Receipt Date: 20241104
  Transmission Date: 20250114
  Serious: Yes (Other)
  Sender: PHARMACOSMOS A/S
  Company Number: None

PATIENT
  Age: 35 Year
  Sex: Female
  Weight: 53 kg

DRUGS (1)
  1. MONOFERRIC [Suspect]
     Active Substance: FERRIC DERISOMALTOSE
     Indication: Anaemia

REACTIONS (16)
  - Head discomfort [Unknown]
  - Infusion related reaction [Unknown]
  - Paraesthesia [Unknown]
  - Abdominal discomfort [Unknown]
  - Defaecation urgency [Unknown]
  - Dizziness [Unknown]
  - Throat tightness [Unknown]
  - Flank pain [Unknown]
  - Blood urine present [Unknown]
  - Chest discomfort [Unknown]
  - Micturition urgency [Unknown]
  - Nausea [Unknown]
  - Abdominal pain [Unknown]
  - Hypoaesthesia [Unknown]
  - Metamorphopsia [Unknown]
  - Back pain [Unknown]
